FAERS Safety Report 8285714-8 (Version None)
Quarter: 2012Q2

REPORT INFORMATION
  Report Type: 
  Country: None (occurrence: None)
  Receive Date: 20120413
  Receipt Date: 20120315
  Transmission Date: 20120825
  Serious: Yes (Other)
  Sender: FDA-Public Use
  Company Number: US-ROCHE-1055039

PATIENT
  Sex: Female
  Weight: 59.928 kg

DRUGS (6)
  1. SINGULAIR [Concomitant]
     Indication: ASTHMA
  2. VENTOLIN [Concomitant]
     Indication: ASTHMA
  3. ADVAIR DISKUS 100/50 [Concomitant]
     Indication: ASTHMA
  4. OMALIZUMAB [Suspect]
     Indication: ASTHMA
     Route: 058
     Dates: start: 20120308
  5. PERCOCET [Concomitant]
     Indication: PAIN
  6. PREDNISONE TAB [Concomitant]

REACTIONS (3)
  - DYSPNOEA [None]
  - SENSATION OF FOREIGN BODY [None]
  - MASS [None]
